FAERS Safety Report 8222796-3 (Version None)
Quarter: 2012Q1

REPORT INFORMATION
  Report Type: 
  Country: None (occurrence: None)
  Receive Date: 20120320
  Receipt Date: 20120306
  Transmission Date: 20120608
  Serious: Yes (Hospitalization)
  Sender: FDA-Public Use
  Company Number: FR-CELGENEUS-056-21880-10121373

PATIENT
  Sex: Male
  Weight: 67.3 kg

DRUGS (7)
  1. REVLIMID [Suspect]
     Indication: MULTIPLE MYELOMA
     Dosage: 10 MILLIGRAM
     Route: 048
     Dates: start: 20101025, end: 20101114
  2. NEORECORMON [Suspect]
     Indication: MULTIPLE MYELOMA
     Dosage: 8571.4286 IU (INTERNATIONAL UNIT)
     Route: 058
     Dates: start: 20101025, end: 20101213
  3. REVLIMID [Suspect]
     Dosage: 5 MILLIGRAM
     Route: 048
     Dates: start: 20101123, end: 20101207
  4. EXJADE [Concomitant]
     Dosage: 1000 MILLIGRAM
     Route: 048
     Dates: start: 20100318
  5. ASPIRIN [Concomitant]
     Indication: PROPHYLAXIS
     Dosage: 75 MILLIGRAM
     Route: 048
     Dates: start: 20101022, end: 20101208
  6. ATARAX [Concomitant]
     Indication: ANXIETY
     Dosage: 25 MILLIGRAM
     Route: 048
     Dates: start: 20101101
  7. DUPHALAC [Concomitant]
     Indication: CONSTIPATION
     Dosage: 20 MILLIGRAM
     Route: 048
     Dates: start: 20101106

REACTIONS (4)
  - FEBRILE NEUTROPENIA [None]
  - PNEUMONIA [None]
  - DEMENTIA [None]
  - RENAL FAILURE [None]
